FAERS Safety Report 14685943 (Version 4)
Quarter: 2018Q2

REPORT INFORMATION
  Report Type: Report from Study
  Country: TH (occurrence: TH)
  Receive Date: 20180327
  Receipt Date: 20180413
  Transmission Date: 20180711
  Serious: Yes (Hospitalization)
  Sender: FDA-Public Use
  Company Number: TH-GILEAD-2018-0329067

PATIENT
  Age: 26 Year
  Sex: Male
  Weight: 58.5 kg

DRUGS (10)
  1. FLUCONAZOLE. [Suspect]
     Active Substance: FLUCONAZOLE
     Indication: ALOPECIA
     Dosage: 100 MG, QD
     Route: 048
     Dates: start: 20180304, end: 20180316
  2. BLINDED PLACEBO [Suspect]
     Active Substance: INVESTIGATIONAL PRODUCT
     Indication: PROPHYLAXIS AGAINST HIV INFECTION
     Dosage: 2 DF, QD
     Route: 048
     Dates: start: 20180216, end: 20180316
  3. FINASTERIDE. [Concomitant]
     Active Substance: FINASTERIDE
     Indication: ALOPECIA
     Dosage: UNK, QD
     Route: 048
     Dates: start: 20170210, end: 20180310
  4. OMEPRAZOLE. [Concomitant]
     Active Substance: OMEPRAZOLE
     Dosage: 20 MG, BID
     Route: 048
     Dates: start: 20180322
  5. SILYMARIN [Concomitant]
     Active Substance: DIETARY SUPPLEMENT\HERBALS\MILK THISTLE
     Dosage: 140 MG, BID
     Route: 048
     Dates: start: 20180319
  6. NIACIN. [Concomitant]
     Active Substance: NIACIN
     Indication: ALOPECIA
     Dosage: UNK UNK, QD
     Route: 048
     Dates: start: 20170210, end: 20180310
  7. THIAMINE. [Concomitant]
     Active Substance: THIAMINE
     Indication: ALOPECIA
     Dosage: UNK, QD
     Route: 048
     Dates: start: 20170210, end: 20180310
  8. ENGERIX-B [Concomitant]
     Active Substance: HEPATITIS B VIRUS SUBTYPE ADW2 HBSAG SURFACE PROTEIN ANTIGEN
     Indication: HEPATITIS B IMMUNISATION
     Dosage: UNK, ONCE
     Route: 030
     Dates: start: 20180301, end: 20180301
  9. SUCRALFATE. [Concomitant]
     Active Substance: SUCRALFATE
     Dosage: 1 G, QID
     Route: 048
     Dates: start: 20180322
  10. BLINDED EMTRICITABINE/TENOFOVIR DISOPROXIL FUMARATE [Suspect]
     Active Substance: EMTRICITABINE\TENOFOVIR DISOPROXIL
     Indication: PROPHYLAXIS AGAINST HIV INFECTION
     Dosage: 2 DF, QD
     Route: 048
     Dates: start: 20180216, end: 20180316

REACTIONS (1)
  - Hepatitis A [Not Recovered/Not Resolved]

NARRATIVE: CASE EVENT DATE: 20180316
